FAERS Safety Report 8376629-5 (Version None)
Quarter: 2012Q2

REPORT INFORMATION
  Report Type: 
  Country: None (occurrence: None)
  Receive Date: 20120522
  Receipt Date: 20120521
  Transmission Date: 20120825
  Serious: No
  Sender: FDA-Public Use
  Company Number: US-PFIZER INC-2012122540

PATIENT
  Sex: Female
  Weight: 43.991 kg

DRUGS (2)
  1. PREGABALIN [Suspect]
     Indication: NEURALGIA
     Dosage: UNK
  2. LYRICA [Suspect]
     Indication: NEURALGIA
     Dosage: 50 MG IN THE MORNING, 50 MG IN THE AFTERNOON AND 75 MG AT NIGHT

REACTIONS (7)
  - PYREXIA [None]
  - CHILLS [None]
  - EAR PAIN [None]
  - OROPHARYNGEAL PAIN [None]
  - COUGH [None]
  - RHINORRHOEA [None]
  - SNEEZING [None]
